FAERS Safety Report 25575476 (Version 2)
Quarter: 2025Q3

REPORT INFORMATION
  Report Type: Spontaneous
  Country: US (occurrence: US)
  Receive Date: 20250718
  Receipt Date: 20250912
  Transmission Date: 20251021
  Serious: Yes (Hospitalization, Other)
  Sender: GRAVITI PHARMACEUTICALS PRIVATE LIMITED
  Company Number: US-GRAVITIPHARMA-GRA-2507-US-LIT-0320

PATIENT
  Age: 60 Year
  Sex: Female

DRUGS (7)
  1. BUPROPION [Suspect]
     Active Substance: BUPROPION
     Indication: Product used for unknown indication
     Route: 065
  2. QUETIAPINE [Suspect]
     Active Substance: QUETIAPINE
     Indication: Product used for unknown indication
     Route: 065
  3. GABAPENTIN [Suspect]
     Active Substance: GABAPENTIN
     Indication: Product used for unknown indication
     Route: 065
  4. ANASTROZOLE [Concomitant]
     Active Substance: ANASTROZOLE
     Indication: Breast cancer
     Route: 065
  5. ANASTROZOLE [Concomitant]
     Active Substance: ANASTROZOLE
     Indication: Chronic obstructive pulmonary disease
  6. VANCOMYCIN [Concomitant]
     Active Substance: VANCOMYCIN
     Indication: Evidence based treatment
     Route: 065
  7. PIPERACILLIN AND TAZOBACTAM [Concomitant]
     Active Substance: PIPERACILLIN SODIUM\TAZOBACTAM SODIUM
     Indication: Product used for unknown indication
     Route: 065

REACTIONS (13)
  - Neurotoxicity [Unknown]
  - Cerebrovascular accident [Unknown]
  - Coma [Unknown]
  - Hypotension [Unknown]
  - Areflexia [Recovered/Resolved]
  - Brain death [Unknown]
  - Lactic acidosis [Unknown]
  - Shock [Unknown]
  - Condition aggravated [Unknown]
  - Myoclonus [Recovered/Resolved]
  - Seizure [Unknown]
  - Overdose [Unknown]
  - Intentional product misuse [Unknown]
